FAERS Safety Report 6058188-5 (Version None)
Quarter: 2009Q1

REPORT INFORMATION
  Report Type: 
  Country: None (occurrence: None)
  Receive Date: 20090127
  Receipt Date: 20090127
  Transmission Date: 20090719
  Serious: Yes (Other)
  Sender: FDA-Public Use
  Company Number: None

PATIENT
  Age: 61 Year
  Sex: Male
  Weight: 132 kg

DRUGS (1)
  1. ENBREL [Suspect]
     Indication: PSORIATIC ARTHROPATHY
     Dosage: 25 MG TWICE WEEKLY SQ
     Route: 058
     Dates: start: 20030101, end: 20090101

REACTIONS (1)
  - PROSTATIC INTRAEPITHELIAL NEOPLASIA [None]
